FAERS Safety Report 11832181 (Version 4)
Quarter: 2016Q2

REPORT INFORMATION
  Report Type: Spontaneous
  Country: US (occurrence: US)
  Receive Date: 20151214
  Receipt Date: 20160516
  Transmission Date: 20160815
  Serious: No
  Sender: FDA-Public Use
  Company Number: US-009507513-1512USA006880

PATIENT
  Age: 31 Year
  Sex: Female
  Weight: 119.27 kg

DRUGS (2)
  1. IMPLANON [Suspect]
     Active Substance: ETONOGESTREL
     Dosage: AN IMPLANT
     Route: 059
     Dates: start: 2009, end: 20120103
  2. IMPLANON [Suspect]
     Active Substance: ETONOGESTREL
     Indication: CONTRACEPTION
     Dosage: A NEW IMPLANT, EVERY 3 YEARS, LEFT ARM IMPLANT
     Route: 059
     Dates: start: 20120103

REACTIONS (6)
  - Complication associated with device [Not Recovered/Not Resolved]
  - Weight increased [Unknown]
  - Device dislocation [Not Recovered/Not Resolved]
  - Amenorrhoea [Unknown]
  - Incorrect drug administration duration [Unknown]
  - Device deployment issue [Not Recovered/Not Resolved]

NARRATIVE: CASE EVENT DATE: 2012
